FAERS Safety Report 15321524 (Version 5)
Quarter: 2019Q3

REPORT INFORMATION
  Report Type: Report from Study
  Country: PL (occurrence: PL)
  Receive Date: 20180827
  Receipt Date: 20190726
  Transmission Date: 20191004
  Serious: Yes (Hospitalization)
  Sender: FDA-Public Use
  Company Number: PL-TOLMAR, INC.-2018PL008561

PATIENT

DRUGS (7)
  1. ATROX [Concomitant]
     Active Substance: ATORVASTATIN CALCIUM
     Indication: HYPERLIPIDAEMIA
     Dosage: 10 MG, ONCE DAILY
     Route: 048
     Dates: start: 20150502
  2. ENZALUTAMIDE [Suspect]
     Active Substance: ENZALUTAMIDE
     Indication: PROSTATE CANCER
     Dosage: UNK, ONCE DAILY
     Route: 048
     Dates: start: 20171012, end: 20180625
  3. AVAMINA [Concomitant]
     Indication: DIABETES MELLITUS
     Dosage: 500 MG, TID
     Route: 048
     Dates: start: 201609
  4. ELIGARD [Suspect]
     Active Substance: LEUPROLIDE ACETATE
     Indication: PROSTATE CANCER
     Dosage: 22.5 MG, EVERY 3MONTHS
     Route: 058
     Dates: start: 20171012, end: 20180329
  5. HUMALOG [Concomitant]
     Active Substance: INSULIN LISPRO
     Indication: DIABETES MELLITUS
     Dosage: 55 IU, TID
     Route: 030
     Dates: start: 201609
  6. POLOCARD [Concomitant]
     Active Substance: ASPIRIN
     Indication: PROPHYLAXIS
     Dosage: 150 MG, ONCE DAILY
     Route: 048
     Dates: start: 201509
  7. VANATEX [Concomitant]
     Indication: HYPERTENSION
     Dosage: 160 MG, ONCE DAILY
     Route: 048
     Dates: start: 201702

REACTIONS (1)
  - Urinary tract infection [Recovered/Resolved]

NARRATIVE: CASE EVENT DATE: 20180807
